FAERS Safety Report 5479278-1 (Version None)
Quarter: 2007Q4

REPORT INFORMATION
  Report Type: 
  Country: None (occurrence: None)
  Receive Date: 20071008
  Receipt Date: 20071001
  Transmission Date: 20080405
  Serious: Yes (Other)
  Sender: FDA-Public Use
  Company Number: US-BRISTOL-MYERS SQUIBB COMPANY-13924501

PATIENT
  Age: 51 Year
  Sex: Female
  Weight: 54 kg

DRUGS (2)
  1. ABILIFY [Suspect]
     Indication: BIPOLAR DISORDER
     Dates: start: 20050115, end: 20070125
  2. LAMICTAL [Suspect]

REACTIONS (8)
  - COGNITIVE DISORDER [None]
  - COORDINATION ABNORMAL [None]
  - GAIT DISTURBANCE [None]
  - INSOMNIA [None]
  - RUPTURED CEREBRAL ANEURYSM [None]
  - TONGUE DISORDER [None]
  - TREMOR [None]
  - VISION BLURRED [None]
